FAERS Safety Report 7221071-3 (Version None)
Quarter: 2011Q1

REPORT INFORMATION
  Report Type: 
  Country: None (occurrence: None)
  Receive Date: 20110112
  Receipt Date: 20110107
  Transmission Date: 20110831
  Serious: No
  Sender: FDA-Public Use
  Company Number: US-PFIZER INC-2011005031

PATIENT
  Sex: Male
  Weight: 63.492 kg

DRUGS (1)
  1. XANAX [Suspect]
     Indication: DRUG DEPENDENCE
     Dosage: UNK

REACTIONS (2)
  - OVERDOSE [None]
  - DRUG ADMINISTRATION ERROR [None]
